FAERS Safety Report 9701731 (Version 1)
Quarter: 2013Q4

REPORT INFORMATION
  Report Type: Spontaneous
  Country: US (occurrence: None)
  Receive Date: 20131120
  Receipt Date: 20131120
  Transmission Date: 20140711
  Serious: Yes (Other)
  Sender: FDA-Public Use
  Company Number: None

PATIENT
  Age: 54 Year
  Sex: Female
  Weight: 74.84 kg

DRUGS (1)
  1. CRESTOR [Suspect]
     Indication: BLOOD CHOLESTEROL INCREASED
     Dates: start: 20130524, end: 20130712

REACTIONS (6)
  - Pyrexia [None]
  - Chills [None]
  - Urinary tract infection [None]
  - Hypersensitivity [None]
  - Feeling hot [None]
  - Feeling cold [None]
